FAERS Safety Report 14380271 (Version 2)
Quarter: 2018Q1

REPORT INFORMATION
  Report Type: Spontaneous
  Country: CO (occurrence: CO)
  Receive Date: 20180112
  Receipt Date: 20180329
  Transmission Date: 20180509
  Serious: Yes (Death, Other)
  Sender: FDA-Public Use
  Company Number: CO-AMGEN-COLSP2016134848

PATIENT
  Age: 73 Year
  Sex: Male

DRUGS (2)
  1. RITUXIMAB. [Concomitant]
     Active Substance: RITUXIMAB
     Dosage: UNK
     Route: 065
  2. ENBREL [Suspect]
     Active Substance: ETANERCEPT
     Indication: RHEUMATOID ARTHRITIS
     Dosage: 50 MG, WEEKLY
     Route: 058
     Dates: start: 2012, end: 20160901

REACTIONS (7)
  - Death [Fatal]
  - Osteonecrosis of jaw [Unknown]
  - Malaise [Unknown]
  - Depression [Unknown]
  - Aphasia [Unknown]
  - Cardiac failure [Unknown]
  - Gait disturbance [Unknown]

NARRATIVE: CASE EVENT DATE: 201609
